FAERS Safety Report 9765769 (Version 1)
Quarter: 2013Q4

REPORT INFORMATION
  Report Type: Spontaneous
  Country: US (occurrence: US)
  Receive Date: 20131217
  Receipt Date: 20131217
  Transmission Date: 20140711
  Serious: No
  Sender: FDA-Public Use
  Company Number: US-GLAXOSMITHKLINE-A1011314A

PATIENT
  Age: 77 Year
  Sex: Female

DRUGS (10)
  1. VOTRIENT [Suspect]
     Indication: MALIGNANT URINARY TRACT NEOPLASM
     Dosage: 800MG PER DAY
     Route: 048
     Dates: start: 20121114
  2. LISINOPRIL [Concomitant]
  3. NEXIUM [Concomitant]
  4. TUMS [Concomitant]
  5. TYLENOL [Concomitant]
  6. ONDANSETRON [Concomitant]
  7. DILTIAZEM [Concomitant]
  8. ATORVASTATIN [Concomitant]
  9. DIGOXIN [Concomitant]
  10. SYNTHROID [Concomitant]

REACTIONS (5)
  - Constipation [Not Recovered/Not Resolved]
  - Flatulence [Not Recovered/Not Resolved]
  - Diarrhoea [Not Recovered/Not Resolved]
  - Nausea [Not Recovered/Not Resolved]
  - Fatigue [Not Recovered/Not Resolved]
